FAERS Safety Report 8820808 (Version 2)
Quarter: 2012Q4

REPORT INFORMATION
  Report Type: 
  Country: US (occurrence: US)
  Receive Date: 20121002
  Receipt Date: 20121009
  Transmission Date: 20130627
  Serious: No
  Sender: FDA-Public Use
  Company Number: US-B.I. PHARMACEUTICALS,INC./RIDGEFIELD-2012-BP-23817BP

PATIENT
  Sex: Male

DRUGS (7)
  1. TRADJENTA [Suspect]
     Indication: TYPE 2 DIABETES MELLITUS
     Route: 048
     Dates: start: 20120915
  2. TRADJENTA [Suspect]
     Route: 048
     Dates: start: 2012, end: 2012
  3. METFORMIN [Concomitant]
     Indication: TYPE 2 DIABETES MELLITUS
     Dosage: 1000 mg
  4. LISINOPRIL [Concomitant]
     Dosage: 5 mg
  5. SYNTHROID [Concomitant]
     Dosage: 50 mcg
  6. ASA [Concomitant]
  7. FENOFIBRATE [Concomitant]

REACTIONS (1)
  - Constipation [Recovered/Resolved]
